FAERS Safety Report 4747040-0 (Version None)
Quarter: 2005Q3

REPORT INFORMATION
  Report Type: 
  Country: None (occurrence: None)
  Receive Date: 20050815
  Receipt Date: 20050801
  Transmission Date: 20060218
  Serious: Yes (Death)
  Sender: FDA-Public Use
  Company Number: 05USA0161

PATIENT
  Age: 62 Year
  Sex: Male

DRUGS (5)
  1. AGGRASTAT [Suspect]
     Indication: CORONARY ANGIOPLASTY
     Dosage: 0.25 MG/ML; { 4 HOURS
     Dates: start: 20050425, end: 20050425
  2. HEPARIN [Concomitant]
  3. ASPIRIN [Concomitant]
  4. STATIN (CHOLESTROL - AND TRIGLYCERIDE REDUCERS) [Concomitant]
  5. XYLOCAINE [Concomitant]

REACTIONS (1)
  - DEATH [None]
